FAERS Safety Report 8970874 (Version 1)
Quarter: 2012Q4

REPORT INFORMATION
  Report Type: 
  Country: US (occurrence: US)
  Receive Date: 20121218
  Receipt Date: 20121218
  Transmission Date: 20130627
  Serious: No
  Sender: FDA-Public Use
  Company Number: US-VERTEX PHARMACEUTICALS INC.-2012-025990

PATIENT
  Age: 23 Year
  Sex: Male
  Weight: 95 kg

DRUGS (4)
  1. VX-950 (TELAPREVIR) [Suspect]
     Indication: HEPATITIS C
     Dosage: 750 mg, tid
     Route: 048
  2. PEGASYS [Suspect]
     Indication: HEPATITIS C
     Dosage: 180MCG/M
  3. RIBAVIRIN [Suspect]
     Indication: HEPATITIS C
  4. IBUPROFEN [Concomitant]

REACTIONS (4)
  - Fatigue [Unknown]
  - Haemorrhoids [Unknown]
  - Pruritus [Unknown]
  - Anal pruritus [Unknown]
